FAERS Safety Report 24544957 (Version 1)
Quarter: 2024Q4

REPORT INFORMATION
  Report Type: Spontaneous
  Country: US (occurrence: None)
  Receive Date: 20241024
  Receipt Date: 20241024
  Transmission Date: 20250115
  Serious: Yes (Hospitalization)
  Sender: Public
  Company Number: None

PATIENT
  Age: 63 Year
  Sex: Female
  Weight: 73 kg

DRUGS (3)
  1. CARBOPLATIN [Suspect]
     Active Substance: CARBOPLATIN
     Dates: end: 20240424
  2. PEMBROLIZUMAB [Suspect]
     Active Substance: PEMBROLIZUMAB
     Dates: end: 20240320
  3. ALIMTA [Suspect]
     Active Substance: PEMETREXED DISODIUM
     Dates: end: 20240424

REACTIONS (11)
  - Hypotension [None]
  - Alanine aminotransferase increased [None]
  - Aspartate aminotransferase increased [None]
  - Neuralgia [None]
  - Mental status changes [None]
  - Pneumonia [None]
  - Sepsis [None]
  - Acute respiratory failure [None]
  - Adrenal insufficiency [None]
  - Brain oedema [None]
  - Hyperglycaemia [None]

NARRATIVE: CASE EVENT DATE: 20241010
